FAERS Safety Report 17234972 (Version 1)
Quarter: 2020Q1

REPORT INFORMATION
  Report Type: Spontaneous
  Country: US (occurrence: US)
  Receive Date: 20200103
  Receipt Date: 20200103
  Transmission Date: 20200409
  Serious: Yes (Hospitalization)
  Sender: FDA-Public Use
  Company Number: None

PATIENT
  Age: 50 Month
  Sex: Female
  Weight: 70 kg

DRUGS (1)
  1. MIRENA [Suspect]
     Active Substance: LEVONORGESTREL

REACTIONS (16)
  - Depression [None]
  - Disturbance in attention [None]
  - Complication of device removal [None]
  - Suicidal ideation [None]
  - Alopecia [None]
  - Nausea [None]
  - Anxiety [None]
  - Affective disorder [None]
  - Palpitations [None]
  - Loss of libido [None]
  - Malaise [None]
  - Insomnia [None]
  - Complication associated with device [None]
  - Vaginal haemorrhage [None]
  - Acne [None]
  - Fatigue [None]

NARRATIVE: CASE EVENT DATE: 20181128
